FAERS Safety Report 4961762-8 (Version None)
Quarter: 2006Q1

REPORT INFORMATION
  Report Type: 
  Country: None (occurrence: None)
  Receive Date: 20060329
  Receipt Date: 20060317
  Transmission Date: 20060701
  Serious: Yes (Death, Life-Threatening, Hospitalization, Other)
  Sender: FDA-Public Use
  Company Number: 2004EU001739

PATIENT
  Age: 43 Year
  Sex: Female

DRUGS (7)
  1. FK506 (TACROLIMUS CAPSULES) [Suspect]
     Indication: RENAL AND PANCREAS TRANSPLANT
     Dosage: SEE IMAGE
     Route: 065
     Dates: start: 20031021, end: 20040821
  2. FK506 (TACROLIMUS CAPSULES) [Suspect]
     Indication: RENAL AND PANCREAS TRANSPLANT
     Dosage: SEE IMAGE
     Route: 065
     Dates: start: 20040901, end: 20051102
  3. FK506 (TACROLIMUS CAPSULES) [Suspect]
     Indication: RENAL AND PANCREAS TRANSPLANT
     Dosage: SEE IMAGE
     Route: 065
     Dates: start: 20040822
  4. . [Concomitant]
  5. RAPAMYCIN (SIROLIMUS) [Suspect]
     Dosage: UNK, 00 MG, UNK
     Route: 065
     Dates: start: 20031021, end: 20040819
  6. RAPAMYCIN (SIROLIMUS) [Suspect]
     Dosage: UNK, 00 MG, UNK
     Route: 065
     Dates: start: 20040820
  7. PREDNISONE TAB [Concomitant]

REACTIONS (13)
  - ACUTE RESPIRATORY DISTRESS SYNDROME [None]
  - COMPLICATIONS OF TRANSPLANTED PANCREAS [None]
  - DISEASE RECURRENCE [None]
  - EPSTEIN-BARR VIRUS TEST POSITIVE [None]
  - GASTRIC ULCER PERFORATION [None]
  - LYMPHOPROLIFERATIVE DISORDER [None]
  - NEOPLASM PROGRESSION [None]
  - PEPTIC ULCER PERFORATION [None]
  - PERITONITIS [None]
  - PNEUMOCYSTIS JIROVECI PNEUMONIA [None]
  - POSTRENAL FAILURE [None]
  - RENAL DISORDER [None]
  - SEPSIS [None]
